FAERS Safety Report 6538329-3 (Version None)
Quarter: 2010Q1

REPORT INFORMATION
  Report Type: 
  Country: None (occurrence: None)
  Receive Date: 20100114
  Receipt Date: 20100107
  Transmission Date: 20100710
  Serious: Yes (Hospitalization, Other)
  Sender: FDA-Public Use
  Company Number: US-PFIZER INC-2010003065

PATIENT
  Sex: Female
  Weight: 80.272 kg

DRUGS (8)
  1. DILANTIN-125 [Suspect]
     Indication: CONVULSION
     Dosage: 100 MG, 3X/DAY
     Dates: start: 19920201
  2. LIPITOR [Suspect]
     Dosage: 10 MG, 1X/DAY
     Dates: start: 19980101
  3. ARTHROTEC [Suspect]
     Indication: BACK PAIN
     Dosage: 50 MG, UP TO TWO TABLETS DAILY AS NEEDED
     Dates: start: 19960101
  4. ACETYLSALICYLIC ACID [Concomitant]
     Dosage: 162.5 MG, 1X/DAY
  5. FOSINOPRIL SODIUM [Concomitant]
     Dosage: 5 MG, UNK
  6. TOPROL-XL [Concomitant]
     Dosage: 25 MG, UNK
  7. GUAIFENESIN [Concomitant]
     Indication: SINUS DISORDER
     Dosage: 600 MG, AS NEEDED
  8. GLYBURIDE [Concomitant]
     Dosage: 5 MG, 4X/DAY

REACTIONS (7)
  - BACK DISORDER [None]
  - BODY HEIGHT DECREASED [None]
  - CARDIOVASCULAR DISORDER [None]
  - INFECTION [None]
  - JOINT SWELLING [None]
  - MYOCARDIAL INFARCTION [None]
  - SKIN DISORDER [None]
